FAERS Safety Report 10904855 (Version 1)
Quarter: 2015Q1

REPORT INFORMATION
  Report Type: Report from Study
  Country: DE (occurrence: DE)
  Receive Date: 20150311
  Receipt Date: 20150311
  Transmission Date: 20150721
  Serious: Yes (Hospitalization)
  Sender: FDA-Public Use
  Company Number: DE-EISAI MEDICAL RESEARCH-E7080-01098-CLI-DE

PATIENT
  Age: 52 Year
  Sex: Female
  Weight: 101 kg

DRUGS (21)
  1. L-THYROXIN [Concomitant]
     Active Substance: LEVOTHYROXINE SODIUM
  2. ANTIFUNGAL CREAM [Concomitant]
     Active Substance: MICONAZOLE NITRATE
  3. VOBADERM [Concomitant]
  4. JODOFORM [Concomitant]
     Indication: ABSCESS LIMB
  5. TORASEMID [Concomitant]
     Active Substance: TORSEMIDE
     Indication: HYPERTENSION
  6. ESTRADIOL. [Concomitant]
     Active Substance: ESTRADIOL
     Indication: HYSTERECTOMY
  7. AMLODIPINE [Concomitant]
     Active Substance: AMLODIPINE BESYLATE
     Indication: HYPERTENSION
  8. BISOPROLOL [Concomitant]
     Active Substance: BISOPROLOL
     Indication: HYPERTENSION
  9. PRONTOSAN [Concomitant]
  10. NOVAMINSULFON [Concomitant]
     Active Substance: METAMIZOLE
     Indication: POST-THORACOTOMY PAIN SYNDROME
  11. LENVATINIB [Suspect]
     Active Substance: LENVATINIB
     Indication: THYROID CANCER
     Route: 048
     Dates: start: 20120919, end: 20121218
  12. RAMIPRIL. [Concomitant]
     Active Substance: RAMIPRIL
     Indication: HYPERTENSION
  13. BATRAFEN [Concomitant]
  14. DONTISOLON [Concomitant]
  15. LENVATINIB [Suspect]
     Active Substance: LENVATINIB
     Route: 048
     Dates: start: 20141016
  16. ENERGEA P [Concomitant]
  17. LENVATINIB [Suspect]
     Active Substance: LENVATINIB
     Route: 048
     Dates: start: 20130308, end: 20141015
  18. MOXONIDINE [Concomitant]
     Active Substance: MOXONIDINE
  19. FUCICORT [Concomitant]
     Active Substance: BETAMETHASONE VALERATE\FUSIDIC ACID
  20. BEPANTHENOL [Concomitant]
  21. MUCOSITIS MOUTHWASH [Concomitant]

REACTIONS (2)
  - Perineal abscess [Recovered/Resolved]
  - Abscess limb [Recovered/Resolved]

NARRATIVE: CASE EVENT DATE: 20121217
